FAERS Safety Report 6361492-4 (Version None)
Quarter: 2009Q3

REPORT INFORMATION
  Report Type: 
  Country: None (occurrence: None)
  Receive Date: 20090918
  Receipt Date: 20090908
  Transmission Date: 20100115
  Serious: Yes (Other)
  Sender: FDA-Public Use
  Company Number: BE-CELGENEUS-013-21880-09030777

PATIENT
  Sex: Female
  Weight: 57 kg

DRUGS (7)
  1. REVLIMID [Suspect]
     Route: 048
     Dates: start: 20090212, end: 20090223
  2. REVLIMID [Suspect]
     Route: 048
  3. DARBEPOETIN [Concomitant]
     Route: 065
     Dates: start: 20080701
  4. DARBEPOETIN [Concomitant]
     Route: 065
  5. COVERSYL [Concomitant]
     Indication: HYPERTENSION
     Route: 065
     Dates: start: 20060101
  6. SINEQUAN [Concomitant]
     Indication: DEPRESSION
     Route: 065
     Dates: start: 20080501
  7. SOLTAN [Concomitant]
     Indication: DEPRESSION
     Route: 065
     Dates: start: 20080501

REACTIONS (1)
  - PRURITUS GENERALISED [None]
